FAERS Safety Report 8862851 (Version 1)
Quarter: 2012Q4

REPORT INFORMATION
  Report Type: Report from Study
  Country: ZA (occurrence: ZA)
  Receive Date: 20121026
  Receipt Date: 20121026
  Transmission Date: 20130627
  Serious: Yes (Death, Congenital Anomaly)
  Sender: FDA-Public Use
  Company Number: ZA-VIIV HEALTHCARE LIMITED-B0835121B

PATIENT
  Age: 0 Year

DRUGS (5)
  1. LAMIVUDINE/ZIDOVUDINE [Suspect]
     Indication: HIV INFECTION
     Dosage: 450MG Twice per day
     Route: 048
     Dates: start: 20120723
  2. LOPINAVIR + RITONAVIR [Suspect]
     Indication: HIV INFECTION
     Dosage: 500MG Twice per day
     Route: 048
     Dates: start: 20120723
  3. PREGAMAL [Concomitant]
  4. PYRIDOXINE [Concomitant]
  5. ISONIAZID [Concomitant]

REACTIONS (3)
  - Heart disease congenital [Fatal]
  - Congenital anomaly [Fatal]
  - Congenital cerebrovascular anomaly [Fatal]
